FAERS Safety Report 12804166 (Version 1)
Quarter: 2016Q4

REPORT INFORMATION
  Report Type: Spontaneous
  Country: US (occurrence: US)
  Receive Date: 20161003
  Receipt Date: 20161003
  Transmission Date: 20170207
  Serious: Yes (Hospitalization, Other)
  Sender: FDA-Public Use
  Company Number: US-BAYER-2016-184381

PATIENT
  Age: 48 Year
  Sex: Male

DRUGS (1)
  1. BETASERON [Suspect]
     Active Substance: INTERFERON BETA-1B
     Dosage: UNK
     Dates: end: 2016

REACTIONS (6)
  - Gastrointestinal disorder [None]
  - Incontinence [None]
  - Diarrhoea [None]
  - Urinary hesitation [None]
  - Hemiparesis [None]
  - Chest pain [None]

NARRATIVE: CASE EVENT DATE: 2016
